FAERS Safety Report 13435927 (Version 1)
Quarter: 2017Q2

REPORT INFORMATION
  Report Type: Spontaneous
  Country: US (occurrence: US)
  Receive Date: 20170413
  Receipt Date: 20170413
  Transmission Date: 20170830
  Serious: Yes (Hospitalization, Other)
  Sender: FDA-Public Use
  Company Number: US-PFIZER INC-2017151607

PATIENT

DRUGS (1)
  1. REVATIO [Suspect]
     Active Substance: SILDENAFIL CITRATE
     Dosage: 30 MG (ONE AND ONE-HALF TABLETS), 3X/DAY
     Route: 048
     Dates: start: 201605

REACTIONS (5)
  - Cardiac failure [Unknown]
  - Renal failure [Unknown]
  - Product use issue [Unknown]
  - Thrombosis [Unknown]
  - Acute kidney injury [Unknown]

NARRATIVE: CASE EVENT DATE: 201605
